FAERS Safety Report 23775535 (Version 3)
Quarter: 2024Q2

REPORT INFORMATION
  Report Type: Spontaneous
  Country: US (occurrence: US)
  Receive Date: 20240423
  Receipt Date: 20240531
  Transmission Date: 20240716
  Serious: No
  Sender: FDA-Public Use
  Company Number: US-JNJFOC-20240384500

PATIENT
  Age: 74 Year
  Sex: Female

DRUGS (2)
  1. MENS ROGAINE EXTRA STRENGTH [Suspect]
     Active Substance: MINOXIDIL
     Indication: Alopecia
     Dosage: PRODUCT DOSE OR QUANTITY: APPLIED LIBERALLY
     Route: 061
     Dates: start: 202312
  2. MENS ROGAINE EXTRA STRENGTH [Suspect]
     Active Substance: MINOXIDIL
     Dosage: PRODUCT DOSE OR QUANTITY: APPLIED LIBERALLY, USING FOR 25 YEARS
     Route: 061

REACTIONS (3)
  - Alopecia [Unknown]
  - Off label use [Unknown]
  - Suspected counterfeit product [Unknown]

NARRATIVE: CASE EVENT DATE: 20231201
